FAERS Safety Report 12227109 (Version 1)
Quarter: 2016Q1

REPORT INFORMATION
  Report Type: Spontaneous
  Country: JP (occurrence: JP)
  Receive Date: 20160331
  Receipt Date: 20160331
  Transmission Date: 20160526
  Serious: Yes (Death, Other)
  Sender: FDA-Public Use
  Company Number: JP-ROXANE LABORATORIES, INC.-2016-RO-00560RO

PATIENT
  Sex: Female

DRUGS (8)
  1. ACTINOMYCIN D [Suspect]
     Active Substance: DACTINOMYCIN
     Indication: ALVEOLAR RHABDOMYOSARCOMA
     Route: 065
     Dates: start: 2008
  2. VINCRISTINE [Suspect]
     Active Substance: VINCRISTINE
     Indication: ALVEOLAR RHABDOMYOSARCOMA
     Route: 065
     Dates: start: 2008
  3. ETOPOSIDE. [Suspect]
     Active Substance: ETOPOSIDE
     Indication: ALVEOLAR RHABDOMYOSARCOMA
     Route: 065
     Dates: start: 2008
  4. PIRARUBICINE [Suspect]
     Active Substance: PIRARUBICIN
     Indication: ALVEOLAR RHABDOMYOSARCOMA
     Route: 065
  5. IFOSFAMIDE. [Suspect]
     Active Substance: IFOSFAMIDE
     Indication: ALVEOLAR RHABDOMYOSARCOMA
     Route: 065
     Dates: start: 2008
  6. CARBOPLATIN. [Suspect]
     Active Substance: CARBOPLATIN
     Indication: ALVEOLAR RHABDOMYOSARCOMA
     Route: 065
     Dates: start: 2008
  7. TOPOTECAN [Suspect]
     Active Substance: TOPOTECAN\TOPOTECAN HYDROCHLORIDE
     Indication: ALVEOLAR RHABDOMYOSARCOMA
     Route: 065
     Dates: start: 2010
  8. CYCLOPHOSPHAMIDE. [Suspect]
     Active Substance: CYCLOPHOSPHAMIDE
     Indication: ALVEOLAR RHABDOMYOSARCOMA
     Route: 065
     Dates: start: 2008

REACTIONS (2)
  - Histiocytosis haematophagic [Fatal]
  - Myelodysplastic syndrome [Unknown]

NARRATIVE: CASE EVENT DATE: 201112
